FAERS Safety Report 9240537 (Version 2)
Quarter: 2013Q2

REPORT INFORMATION
  Report Type: Spontaneous
  Country: US (occurrence: US)
  Receive Date: 20130418
  Receipt Date: 20130523
  Transmission Date: 20140414
  Serious: No
  Sender: FDA-Public Use
  Company Number: US-ASTRAZENECA-2013SE22295

PATIENT
  Age: 757 Month
  Sex: Female
  Weight: 61.2 kg

DRUGS (3)
  1. SYMBICORT [Suspect]
     Indication: CHRONIC OBSTRUCTIVE PULMONARY DISEASE
     Dosage: 80/4.5 MCG 2 PUFFS BID
     Route: 055
     Dates: start: 201208
  2. SYMBICORT [Suspect]
     Indication: CHRONIC OBSTRUCTIVE PULMONARY DISEASE
     Dosage: 80/4.5 MCG 2 PUFFS BID WHEN SHE NEEDS
     Route: 055
     Dates: start: 201208
  3. LEVOXYL [Concomitant]

REACTIONS (2)
  - Diarrhoea [Unknown]
  - Intentional drug misuse [Unknown]
